FAERS Safety Report 4418108-3 (Version None)
Quarter: 2004Q3

REPORT INFORMATION
  Report Type: 
  Country: None (occurrence: None)
  Receive Date: 20040805
  Receipt Date: 20040805
  Transmission Date: 20050211
  Serious: Yes (Hospitalization)
  Sender: FDA-Public Use
  Company Number: None

PATIENT
  Age: 59 Year
  Sex: Male
  Weight: 67 kg

DRUGS (7)
  1. OMNIPAQUE 180 [Suspect]
     Indication: BACK PAIN
     Dosage: 10CC LUMBAR MYELOGRAM
     Dates: start: 20040730
  2. OMNIPAQUE 180 [Suspect]
     Indication: RADICULOPATHY
     Dosage: 10CC LUMBAR MYELOGRAM
     Dates: start: 20040730
  3. RELAFEN [Concomitant]
  4. AXID [Concomitant]
  5. MULTI-VITAMIN [Concomitant]
  6. VICODIN [Concomitant]
  7. TYLENOL [Concomitant]

REACTIONS (2)
  - MENINGITIS [None]
  - POST PROCEDURAL COMPLICATION [None]
